FAERS Safety Report 18548305 (Version 2)
Quarter: 2021Q1

REPORT INFORMATION
  Report Type: Spontaneous
  Country: JP (occurrence: JP)
  Receive Date: 20201126
  Receipt Date: 20210210
  Transmission Date: 20210419
  Serious: Yes (Death)
  Sender: FDA-Public Use
  Company Number: JP-BAYER-2020-249063

PATIENT

DRUGS (1)
  1. STIVARGA [Suspect]
     Active Substance: REGORAFENIB
     Indication: COLON CANCER
     Dosage: DAILY DOSE 120 MG
     Dates: start: 20201026, end: 20201103

REACTIONS (3)
  - Colon cancer [Fatal]
  - Hepatic function abnormal [Unknown]
  - Off label use [None]

NARRATIVE: CASE EVENT DATE: 20201103
